FAERS Safety Report 5510906-8 (Version None)
Quarter: 2007Q4

REPORT INFORMATION
  Report Type: 
  Country: None (occurrence: None)
  Receive Date: 20071107
  Receipt Date: 20071022
  Transmission Date: 20080405
  Serious: Yes (Hospitalization, Disabling)
  Sender: FDA-Public Use
  Company Number: 002#2#2006-00255

PATIENT
  Age: 74 Year
  Sex: Male
  Weight: 73.9363 kg

DRUGS (4)
  1. OMEPRAZOLE [Suspect]
     Indication: GASTROOESOPHAGEAL REFLUX DISEASE
     Dosage: 20 MG,1 IN 1 D,ORAL
     Route: 048
     Dates: start: 20040801, end: 20040910
  2. OMEPRAZOLE [Suspect]
     Indication: GASTROOESOPHAGEAL REFLUX DISEASE
     Dosage: 20 MG,1 IN 1 D,ORAL
     Route: 048
     Dates: start: 20050401, end: 20050401
  3. LEVOBUNOLOL HYDROCHLORIDE [Concomitant]
  4. MULTI-VITAMIN [Concomitant]

REACTIONS (8)
  - ACTIVATED PARTIAL THROMBOPLASTIN TIME PROLONGED [None]
  - ANOREXIA [None]
  - ASTHENIA [None]
  - DIALYSIS [None]
  - HEADACHE [None]
  - NAUSEA [None]
  - RENAL FAILURE [None]
  - RETCHING [None]
